FAERS Safety Report 5987482-9 (Version None)
Quarter: 2008Q4

REPORT INFORMATION
  Report Type: 
  Country: None (occurrence: None)
  Receive Date: 20081209
  Receipt Date: 20081203
  Transmission Date: 20090506
  Serious: Yes (Other)
  Sender: FDA-Public Use
  Company Number: JP-ASTRAZENECA-2007AP02590

PATIENT
  Age: 20747 Day
  Sex: Male
  Weight: 56.2 kg

DRUGS (10)
  1. NAROPIN [Suspect]
     Indication: EPIDURAL ANAESTHESIA
     Route: 008
     Dates: start: 20070418, end: 20070420
  2. NAROPIN [Suspect]
     Dosage: PCA 3 ML (ANAPEINE ALONE)
     Route: 008
     Dates: start: 20070418, end: 20070420
  3. MARCAINE HYDROCHLORIDE PRESERVATIVE FREE [Concomitant]
     Route: 037
     Dates: start: 20070418, end: 20070418
  4. MARCAINE HYDROCHLORIDE PRESERVATIVE FREE [Concomitant]
     Route: 037
     Dates: start: 20070418, end: 20070418
  5. CARBOCAIN [Concomitant]
     Route: 008
     Dates: start: 20070418, end: 20070418
  6. CARBOCAIN [Concomitant]
     Dosage: TEST DOSE
     Route: 008
     Dates: start: 20070418, end: 20070418
  7. PURSENNID [Concomitant]
     Indication: PREMEDICATION
     Route: 048
     Dates: start: 20070416, end: 20070417
  8. PENTAZOCINE LACTATE [Concomitant]
     Indication: PAIN
     Route: 030
     Dates: start: 20070418, end: 20070418
  9. ADONA [Concomitant]
     Indication: HAEMORRHAGE
     Route: 041
     Dates: start: 20070418, end: 20070421
  10. CEFAMEZIN ALPHA [Concomitant]
     Indication: INFECTION PROPHYLAXIS
     Route: 041
     Dates: start: 20070418, end: 20070423

REACTIONS (2)
  - MUSCULAR WEAKNESS [None]
  - PARALYSIS [None]
